FAERS Safety Report 4956945-7 (Version None)
Quarter: 2006Q1

REPORT INFORMATION
  Report Type: 
  Country: None (occurrence: None)
  Receive Date: 20060323
  Receipt Date: 20060307
  Transmission Date: 20060701
  Serious: Yes (Hospitalization, Disabling)
  Sender: FDA-Public Use
  Company Number: 422740

PATIENT
  Age: 18 Year
  Sex: Female
  Weight: 63.5 kg

DRUGS (2)
  1. ACCUTANE [Suspect]
     Indication: ACNE
     Dosage: ORAL
     Route: 048
     Dates: start: 19990615, end: 20000615
  2. LORTAB [Concomitant]

REACTIONS (60)
  - ABSCESS [None]
  - ANAEMIA [None]
  - ANTINUCLEAR ANTIBODY POSITIVE [None]
  - ANXIETY [None]
  - APPENDICECTOMY [None]
  - ARTHROPOD BITE [None]
  - ASTHMA [None]
  - ATELECTASIS [None]
  - BACK INJURY [None]
  - BACK PAIN [None]
  - BLADDER DISORDER [None]
  - BLEEDING TIME PROLONGED [None]
  - BLOOD CREATININE INCREASED [None]
  - BLOOD GLUCOSE INCREASED [None]
  - BLOOD UREA NITROGEN/CREATININE RATIO DECREASED [None]
  - CATHETER RELATED COMPLICATION [None]
  - CHROMATURIA [None]
  - COLITIS [None]
  - COLITIS ULCERATIVE [None]
  - CONDITION AGGRAVATED [None]
  - COUGH [None]
  - CYSTITIS [None]
  - DRUG EXPOSURE BEFORE PREGNANCY [None]
  - DRUG HYPERSENSITIVITY [None]
  - DYSPEPSIA [None]
  - DYSPNOEA EXERTIONAL [None]
  - FALL [None]
  - GASTROINTESTINAL DISORDER [None]
  - GASTROOESOPHAGEAL REFLUX DISEASE [None]
  - GLOMERULONEPHRITIS PROLIFERATIVE [None]
  - HAEMATOCHEZIA [None]
  - HAEMATOCRIT DECREASED [None]
  - HAEMATURIA [None]
  - HAEMOGLOBIN DECREASED [None]
  - HEADACHE [None]
  - HERNIA [None]
  - HYPERTENSION [None]
  - HYPOAESTHESIA [None]
  - INFLAMMATORY BOWEL DISEASE [None]
  - INJURY [None]
  - INTESTINAL HAEMORRHAGE [None]
  - JOINT INJURY [None]
  - JOINT SPRAIN [None]
  - MICTURITION DISORDER [None]
  - MUSCULOSKELETAL DISORDER [None]
  - MUSCULOSKELETAL PAIN [None]
  - NAUSEA [None]
  - NECK INJURY [None]
  - PAIN [None]
  - PRE-ECLAMPSIA [None]
  - PREMATURE LABOUR [None]
  - PROTEINURIA [None]
  - RED BLOOD CELL COUNT DECREASED [None]
  - RED BLOOD CELL SEDIMENTATION RATE INCREASED [None]
  - SINUS DISORDER [None]
  - SPECIFIC GRAVITY URINE INCREASED [None]
  - SWELLING [None]
  - URINARY RETENTION [None]
  - URINARY TRACT INFECTION [None]
  - URINE ABNORMALITY [None]
